FAERS Safety Report 15543162 (Version 1)
Quarter: 2018Q4

REPORT INFORMATION
  Report Type: Spontaneous
  Country: US (occurrence: US)
  Receive Date: 20181023
  Receipt Date: 20181023
  Transmission Date: 20190205
  Serious: Yes (Other)
  Sender: FDA-Public Use
  Company Number: US-PFIZER INC-2018426015

PATIENT
  Age: 47 Year
  Sex: Male

DRUGS (2)
  1. PENTOSTATIN. [Suspect]
     Active Substance: PENTOSTATIN
     Indication: HEPATOSPLENIC T-CELL LYMPHOMA
     Dosage: 5 MG/M2, CYCLIC (DAYS 1-3)
  2. CYCLOPHOSPHAMIDE. [Suspect]
     Active Substance: CYCLOPHOSPHAMIDE
     Indication: HEPATOSPLENIC T-CELL LYMPHOMA
     Dosage: 300 MG/M2, CYCLIC (ON DAY 1)

REACTIONS (2)
  - Renal failure [Unknown]
  - Glomerulonephritis membranoproliferative [Unknown]
